FAERS Safety Report 5704256-4 (Version None)
Quarter: 2008Q2

REPORT INFORMATION
  Report Type: 
  Country: None (occurrence: None)
  Receive Date: 20080414
  Receipt Date: 20080214
  Transmission Date: 20081010
  Serious: No
  Sender: FDA-Public Use
  Company Number: US-BAYER-200814036NA

PATIENT
  Age: 37 Year
  Sex: Female
  Weight: 103 kg

DRUGS (9)
  1. ULTRAVIST 370 [Suspect]
     Indication: ANGIOGRAM
     Dosage: TOTAL DAILY DOSE: 125 ML  UNIT DOSE: 125 ML
     Route: 042
     Dates: start: 20080213, end: 20080213
  2. ALBUTEROL [Concomitant]
  3. SPIRIVA [Concomitant]
  4. HYDROCODONE BITARTRATE [Concomitant]
  5. IMITREX [Concomitant]
  6. CYMBALTA [Concomitant]
  7. LYRICA [Concomitant]
  8. ZYRTEC [Concomitant]
  9. HYDROCHLOROTHIAZIDE [Concomitant]

REACTIONS (7)
  - CHEST DISCOMFORT [None]
  - DYSPNOEA [None]
  - ERYTHEMA [None]
  - EYE SWELLING [None]
  - OCULAR HYPERAEMIA [None]
  - PRURITUS GENERALISED [None]
  - URTICARIA [None]
